FAERS Safety Report 16341106 (Version 1)
Quarter: 2019Q2

REPORT INFORMATION
  Report Type: Spontaneous
  Country: US (occurrence: US)
  Receive Date: 20190522
  Receipt Date: 20190522
  Transmission Date: 20190711
  Serious: Yes (Death)
  Sender: FDA-Public Use
  Company Number: US-INSYS THERAPEUTICS, INC-INS201905-000356

PATIENT
  Age: 34 Year
  Sex: Male

DRUGS (4)
  1. FENTANYL. [Suspect]
     Active Substance: FENTANYL
     Indication: PRODUCT USED FOR UNKNOWN INDICATION
  2. FURANYLFENTANYL [Suspect]
     Active Substance: FURANYLFENTANYL
  3. HEROIN [Suspect]
     Active Substance: DIAMORPHINE
  4. CARFENTANIL [Suspect]
     Active Substance: CARFENTANIL

REACTIONS (1)
  - Toxicity to various agents [Fatal]
